FAERS Safety Report 14606298 (Version 2)
Quarter: 2018Q1

REPORT INFORMATION
  Report Type: Spontaneous
  Country: JP (occurrence: JP)
  Receive Date: 20180307
  Receipt Date: 20180315
  Transmission Date: 20180509
  Serious: Yes (Other)
  Sender: FDA-Public Use
  Company Number: JP-AMGEN-JPNSP2018029705

PATIENT
  Age: 84 Year
  Sex: Female

DRUGS (3)
  1. EDIROL [Concomitant]
     Active Substance: ELDECALCITOL
     Indication: OSTEOPOROSIS
     Dosage: 0.75 MUG, QD
     Route: 048
  2. PRALIA [Suspect]
     Active Substance: DENOSUMAB
     Indication: OSTEOPOROSIS
     Dosage: 60 MG, Q6MO
     Route: 058
  3. EDIROL [Concomitant]
     Active Substance: ELDECALCITOL
     Indication: HYPOCALCAEMIA

REACTIONS (3)
  - Osteonecrosis of jaw [Not Recovered/Not Resolved]
  - Tooth extraction [Unknown]
  - Gingival disorder [Unknown]

NARRATIVE: CASE EVENT DATE: 201802
